FAERS Safety Report 6033150-7 (Version None)
Quarter: 2008Q4

REPORT INFORMATION
  Report Type: 
  Country: None (occurrence: None)
  Receive Date: 20081224
  Receipt Date: 20081106
  Transmission Date: 20090506
  Serious: No
  Sender: FDA-Public Use
  Company Number: 2008PV037061

PATIENT
  Age: 55 Year
  Sex: Female
  Weight: 124.2856 kg

DRUGS (5)
  1. SYMLIN [Suspect]
     Indication: TYPE 2 DIABETES MELLITUS
     Dosage: ;SC
     Route: 058
     Dates: start: 20050101, end: 20070501
  2. BYETTA [Concomitant]
  3. METFORMIN [Concomitant]
  4. LANTUS [Concomitant]
  5. HUMULIN [Concomitant]

REACTIONS (8)
  - BLOOD GLUCOSE DECREASED [None]
  - COLD SWEAT [None]
  - DYSPNOEA [None]
  - HUNGER [None]
  - MENTAL IMPAIRMENT [None]
  - NAUSEA [None]
  - PALPITATIONS [None]
  - TREMOR [None]
